FAERS Safety Report 24706891 (Version 1)
Quarter: 2024Q4

REPORT INFORMATION
  Report Type: Report from Study
  Country: BR (occurrence: BR)
  Receive Date: 20241206
  Receipt Date: 20241206
  Transmission Date: 20250115
  Serious: Yes (Death, Hospitalization)
  Sender: BAYER HEALTHCARE PHARMACEUTICALS INC.
  Company Number: BR-BAYER-2024A169291

PATIENT

DRUGS (2)
  1. NEXAVAR [Suspect]
     Active Substance: SORAFENIB
     Indication: Thyroid cancer
     Dosage: 400 MG, QD(ONE IN THE MORNING AND ONE AT NIGHT).
     Dates: end: 20240610
  2. SIMVASTATIN [Concomitant]
     Active Substance: SIMVASTATIN
     Dosage: NOT INFORMED

REACTIONS (10)
  - Metastases to liver [Fatal]
  - Metastases to kidney [Fatal]
  - Metastases to spine [Fatal]
  - Thyroid cancer metastatic [Fatal]
  - Metastasis [Fatal]
  - Metastases to lung [Fatal]
  - Pain [Unknown]
  - Malaise [Unknown]
  - Discomfort [None]
  - Incorrect dosage administered [None]

NARRATIVE: CASE EVENT DATE: 20240611
